FAERS Safety Report 18298628 (Version 2)
Quarter: 2020Q4

REPORT INFORMATION
  Report Type: Report from Study
  Country: US (occurrence: US)
  Receive Date: 20200922
  Receipt Date: 20201019
  Transmission Date: 20210113
  Serious: Yes (Hospitalization, Other)
  Sender: FDA-Public Use
  Company Number: US-BRISTOL-MYERS SQUIBB COMPANY-BMS-2020-075503

PATIENT
  Sex: Male
  Weight: 92.1 kg

DRUGS (1)
  1. ABATACEPT [Suspect]
     Active Substance: ABATACEPT
     Indication: CHRONIC GRAFT VERSUS HOST DISEASE
     Dosage: 10 MILLIGRAM/KILOGRAM, OVER 30 MINUTES
     Route: 065
     Dates: start: 20190517

REACTIONS (1)
  - Syncope [Unknown]

NARRATIVE: CASE EVENT DATE: 20200821
